FAERS Safety Report 21503442 (Version 1)
Quarter: 2022Q4

REPORT INFORMATION
  Report Type: Spontaneous
  Country: US (occurrence: US)
  Receive Date: 20221025
  Receipt Date: 20221025
  Transmission Date: 20230113
  Serious: No
  Sender: FDA-Public Use
  Company Number: US-BAYER-2022A143287

PATIENT
  Age: 76 Year
  Sex: Female

DRUGS (1)
  1. MIRENA [Suspect]
     Active Substance: LEVONORGESTREL
     Indication: Precancerous condition
     Dosage: 20?G/DAY
     Route: 015
     Dates: start: 20220928, end: 20221014

REACTIONS (5)
  - Off label use [None]
  - Vaginal haemorrhage [None]
  - Abdominal pain lower [None]
  - Medical device pain [None]
  - Hyperplasia [None]
